FAERS Safety Report 20080506 (Version 1)
Quarter: 2021Q4

REPORT INFORMATION
  Report Type: Spontaneous
  Country: US (occurrence: None)
  Receive Date: 20211116
  Receipt Date: 20211116
  Transmission Date: 20220304
  Serious: No
  Sender: FDA-Public Use
  Company Number: None

PATIENT
  Age: 81 Year
  Sex: Male

DRUGS (1)
  1. RYBREVANT [Suspect]
     Active Substance: AMIVANTAMAB-VMJW
     Dosage: OTHER FREQUENCY : ONCE;?
     Route: 041
     Dates: start: 20211116, end: 20211116

REACTIONS (8)
  - Infusion related reaction [None]
  - Anxiety [None]
  - Discomfort [None]
  - Screaming [None]
  - Blindness transient [None]
  - Blood pressure decreased [None]
  - Oxygen saturation decreased [None]
  - Blood glucose increased [None]

NARRATIVE: CASE EVENT DATE: 20211116
